FAERS Safety Report 10661513 (Version 1)
Quarter: 2014Q4

REPORT INFORMATION
  Report Type: Spontaneous
  Country: US (occurrence: None)
  Receive Date: 20141217
  Receipt Date: 20141217
  Transmission Date: 20150529
  Serious: Yes (Hospitalization)
  Sender: FDA-Public Use
  Company Number: None

PATIENT
  Age: 58 Year
  Sex: Male
  Weight: 51.5 kg

DRUGS (2)
  1. LITHIUM [Suspect]
     Active Substance: LITHIUM CARBONATE
  2. TRETINOIN. [Suspect]
     Active Substance: TRETINOIN
     Dosage: 10 MG AM AND 30 MG PM

REACTIONS (8)
  - Oxygen saturation decreased [None]
  - Bronchitis [None]
  - Pyrexia [None]
  - Chronic obstructive pulmonary disease [None]
  - Tachycardia [None]
  - Dyspnoea [None]
  - Febrile neutropenia [None]
  - Tachypnoea [None]
